FAERS Safety Report 9160068 (Version 1)
Quarter: 2013Q1

REPORT INFORMATION
  Report Type: Spontaneous
  Country: US (occurrence: None)
  Receive Date: 20130215
  Receipt Date: 20130215
  Transmission Date: 20140127
  Serious: Yes (Life-Threatening, Other)
  Sender: FDA-Public Use
  Company Number: AMAG201300018

PATIENT
  Age: 76 Year
  Sex: Male
  Weight: 127 kg

DRUGS (14)
  1. FERAHEME [Suspect]
     Indication: IRON DEFICIENCY ANAEMIA
     Dosage: 510 MG, SINGLE, IV PUSH
     Route: 042
     Dates: start: 20120628, end: 20120628
  2. FERAHEME [Suspect]
     Indication: RENAL FAILURE CHRONIC
     Dosage: 510 MG, SINGLE, IV PUSH
     Route: 042
     Dates: start: 20120628, end: 20120628
  3. ADVAIR HFA (FLUTICASONE PROPIONATE, SALMETEROL XINAFOATE) [Concomitant]
  4. ALBUTEROL SULFATE (ALBUTEROL SULFATE) [Concomitant]
  5. CALCITROL (CALCIUM CARBONATE, ERGOCALCIFEROL, RETINOL) [Concomitant]
  6. COUMADIN (COUMARIN) [Concomitant]
  7. CARVEDILOL (CARVEDILOL) [Concomitant]
  8. GLYBURIDE (GLYBURIDE) [Concomitant]
  9. LANTUS (INSULIN GLARGINE) [Concomitant]
  10. LEVOTHYROXINE (LEVOTHYROXINE) [Concomitant]
  11. LISINOPRIL (LISINOPRIL) [Concomitant]
  12. OMEPRAZOLE (OMEPRAZOLE) [Concomitant]
  13. COREG (CARVEDILOL) [Concomitant]
  14. CARDIZEM (DILTIAZEM HYDROCHLORIDE) [Concomitant]

REACTIONS (8)
  - Anaphylactic shock [None]
  - Blood glucose increased [None]
  - Blood pH decreased [None]
  - Myocardial infarction [None]
  - Blood uric acid increased [None]
  - Blood chloride decreased [None]
  - Blood bicarbonate increased [None]
  - Abdominal pain [None]
